FAERS Safety Report 8970161 (Version 1)
Quarter: 2012Q4

REPORT INFORMATION
  Report Type: 
  Country: US (occurrence: US)
  Receive Date: 20121218
  Receipt Date: 20121218
  Transmission Date: 20130627
  Serious: No
  Sender: FDA-Public Use
  Company Number: US-ABBOTT-12P-163-0943183-00

PATIENT
  Age: 47 Year
  Sex: Female
  Weight: 60.38 kg

DRUGS (2)
  1. PROMETRIUM [Suspect]
     Indication: MENSTRUATION IRREGULAR
     Dosage: Days 1 to 12 of her cycle.
     Dates: start: 20120302
  2. PROMETRIUM [Suspect]
     Indication: METRORRHAGIA

REACTIONS (2)
  - Off label use [Unknown]
  - Menstruation irregular [Recovered/Resolved]
